FAERS Safety Report 9807450 (Version 1)
Quarter: 2014Q1

REPORT INFORMATION
  Report Type: Spontaneous
  Country: US (occurrence: US)
  Receive Date: 20140110
  Receipt Date: 20140110
  Transmission Date: 20141002
  Serious: No
  Sender: FDA-Public Use
  Company Number: US-PFIZER INC-2014006389

PATIENT
  Age: 49 Year
  Sex: Male
  Weight: 100 kg

DRUGS (2)
  1. XANAX [Suspect]
     Indication: PANIC ATTACK
     Dosage: 2 MG, 4X/DAY
  2. RISPERIDONE [Concomitant]
     Indication: BIPOLAR DISORDER
     Dosage: UNK, DAILY
     Dates: start: 2013

REACTIONS (2)
  - Pre-existing condition improved [Unknown]
  - Therapeutic response unexpected [Unknown]
